FAERS Safety Report 4684945-3 (Version None)
Quarter: 2005Q2

REPORT INFORMATION
  Report Type: 
  Country: None (occurrence: None)
  Receive Date: 20050603
  Receipt Date: 20050523
  Transmission Date: 20051028
  Serious: Yes (Hospitalization)
  Sender: FDA-Public Use
  Company Number: 11250

PATIENT
  Age: 50 Year
  Sex: Female

DRUGS (3)
  1. METHOTREXATE [Suspect]
     Indication: PSORIASIS
     Dosage: 17.5 MG WEEKLY PO
     Route: 048
  2. METHOTREXATE [Suspect]
     Indication: PSORIATIC ARTHROPATHY
     Dosage: 17.5 MG WEEKLY PO
     Route: 048
  3. FOLIC ACID [Concomitant]

REACTIONS (8)
  - DRUG INEFFECTIVE [None]
  - DYSSTASIA [None]
  - FALL [None]
  - HEPATIC ENZYME INCREASED [None]
  - NAUSEA [None]
  - SYNCOPE [None]
  - VERTIGO [None]
  - VOMITING [None]
